FAERS Safety Report 9148601 (Version 2)
Quarter: 2013Q1

REPORT INFORMATION
  Report Type: Spontaneous
  Country: US (occurrence: None)
  Receive Date: 20130211
  Receipt Date: 20130225
  Transmission Date: 20140127
  Serious: Yes (Death)
  Sender: FDA-Public Use
  Company Number: UTC-028802

PATIENT
  Age: 33 Year
  Sex: Female
  Weight: 78 kg

DRUGS (6)
  1. REMODULIN (5 MILLIGRAM/MILLILITERS, INJECTION FOR INFUSION) (TREPROSTINIL SODIUM) [Suspect]
     Indication: COR PULMONALE CHRONIC
     Dosage: 37.44 UG/KG (0.026 UG/KG, 1 IN 1 MIN),SUBCUTANEOUS
     Route: 058
     Dates: start: 20120717
  2. REVATIO(SILDENAFIL CITRATE) (UNKNOWN) [Concomitant]
  3. ACETAMINOPHEN(PARACETAMOL) (UNKNOWN) [Concomitant]
  4. POTASSIUM CHLORIDE(UNKNOWN) [Concomitant]
  5. FUROSEMIDE(UNKNOWN) [Concomitant]
  6. GUAIFENESIN(UNKNOWN) [Concomitant]

REACTIONS (1)
  - Death [None]
